FAERS Safety Report 5624102-7 (Version None)
Quarter: 2008Q1

REPORT INFORMATION
  Report Type: 
  Country: None (occurrence: None)
  Receive Date: 20080213
  Receipt Date: 20071004
  Transmission Date: 20080703
  Serious: No
  Sender: FDA-Public Use
  Company Number: US-KINGPHARMUSA00001-K200701290

PATIENT

DRUGS (1)
  1. EPIPEN [Suspect]
     Dates: start: 20071004, end: 20071004

REACTIONS (1)
  - ACCIDENTAL NEEDLE STICK [None]
